FAERS Safety Report 26108220 (Version 2)
Quarter: 2025Q4

REPORT INFORMATION
  Report Type: Report from Study
  Country: EU (occurrence: EU)
  Receive Date: 20251201
  Receipt Date: 20251205
  Transmission Date: 20260117
  Serious: Yes (Disabling)
  Sender: ROCHE
  Company Number: EU-ROCHE-10000298199

PATIENT
  Age: 51 Year
  Sex: Male
  Weight: 63 kg

DRUGS (9)
  1. OCRELIZUMAB [Suspect]
     Active Substance: OCRELIZUMAB
     Indication: Primary progressive multiple sclerosis
     Dosage: TOTAL VOLUME PRIOR SAE: 600 ML
     Route: 042
     Dates: start: 20211206, end: 20211206
  2. OCRELIZUMAB [Suspect]
     Active Substance: OCRELIZUMAB
     Dosage: TOTAL VOLUME PRIOR SAE: 500 ML
     Route: 042
     Dates: start: 20230613, end: 20230613
  3. OCRELIZUMAB [Suspect]
     Active Substance: OCRELIZUMAB
     Dosage: TOTAL VOLUME PRIOR SAE: 500 ML
     Route: 042
     Dates: start: 20210616, end: 20210616
  4. OCRELIZUMAB [Suspect]
     Active Substance: OCRELIZUMAB
     Dosage: TOTAL VOLUME PRIOR SAE: 500 ML
     Route: 042
     Dates: start: 20221208, end: 20221208
  5. OCRELIZUMAB [Suspect]
     Active Substance: OCRELIZUMAB
     Dosage: TOTAL VOLUME PRIOR SAE: 500 ML
     Route: 042
     Dates: start: 20250312, end: 20250312
  6. OCRELIZUMAB [Suspect]
     Active Substance: OCRELIZUMAB
     Dosage: TOTAL VOLUME PRIOR SAE: 500 ML
     Route: 042
     Dates: start: 20231213, end: 20231213
  7. OCRELIZUMAB [Suspect]
     Active Substance: OCRELIZUMAB
     Dosage: TOTAL VOLUME PRIOR SAE: 500 ML
     Route: 042
     Dates: start: 20240614, end: 20240614
  8. OCRELIZUMAB [Suspect]
     Active Substance: OCRELIZUMAB
     Dosage: TOTAL VOLUME PRIOR SAE: 500 ML
     Route: 042
     Dates: start: 20220606, end: 20220606
  9. OCRELIZUMAB [Suspect]
     Active Substance: OCRELIZUMAB
     Dosage: TOTAL VOLUME PRIOR SAE: 250 ML
     Route: 042
     Dates: start: 20201207, end: 20201207

REACTIONS (1)
  - Lung cancer metastatic [Not Recovered/Not Resolved]

NARRATIVE: CASE EVENT DATE: 20250428
